FAERS Safety Report 6570007-7 (Version None)
Quarter: 2010Q1

REPORT INFORMATION
  Report Type: 
  Country: None (occurrence: None)
  Receive Date: 20100204
  Receipt Date: 20100129
  Transmission Date: 20100710
  Serious: Yes (Death, Other)
  Sender: FDA-Public Use
  Company Number: IT-ROCHE-657107

PATIENT
  Sex: Female

DRUGS (8)
  1. AVASTIN [Suspect]
     Dosage: DOSING FREQUENCY: CYCLE
     Route: 042
     Dates: start: 20080301, end: 20080731
  2. ZOMETA [Suspect]
     Indication: BREAST CANCER
     Route: 042
     Dates: start: 20080301, end: 20080630
  3. ZOMETA [Suspect]
     Route: 042
  4. VINORELBINE [Concomitant]
     Dates: start: 20080701, end: 20080801
  5. PACLITAXEL [Concomitant]
  6. PACLITAXEL [Concomitant]
     Dosage: THERAPY RESTARTED.
  7. GEMCITABINE [Concomitant]
  8. GEMCITABINE [Concomitant]
     Dosage: THERAPY RESTARTED.

REACTIONS (2)
  - DISEASE PROGRESSION [None]
  - OSTEONECROSIS [None]
